FAERS Safety Report 10666203 (Version 1)
Quarter: 2014Q4

REPORT INFORMATION
  Report Type: Spontaneous
  Country: US (occurrence: US)
  Receive Date: 20141219
  Receipt Date: 20141219
  Transmission Date: 20150529
  Serious: No
  Sender: FDA-Public Use
  Company Number: US-ASTRAZENECA-2014SE96265

PATIENT
  Age: 68 Year
  Sex: Female
  Weight: 52 kg

DRUGS (30)
  1. NEXIUM [Suspect]
     Active Substance: ESOMEPRAZOLE MAGNESIUM
     Route: 048
  2. SLIPPERY ELM [Concomitant]
  3. ASCORBIC ACID. [Concomitant]
     Active Substance: ASCORBIC ACID
  4. PANTHENOL [Concomitant]
     Active Substance: PANTHENOL
  5. THIAMINE HYDROCHLORIDE. [Concomitant]
     Active Substance: THIAMINE HYDROCHLORIDE
  6. CALCIUM ASCORBATE [Concomitant]
     Active Substance: CALCIUM ASCORBATE
     Indication: OESOPHAGEAL DISORDER
  7. ACIDOPHILUS [Concomitant]
     Active Substance: LACTOBACILLUS ACIDOPHILUS
  8. ERGOCALCIFEROL. [Concomitant]
     Active Substance: ERGOCALCIFEROL
  9. OTHER B VITAMINS [Concomitant]
  10. COENZYME Q10 [Concomitant]
     Active Substance: UBIDECARENONE
  11. VITAMIN E [Concomitant]
     Active Substance: .ALPHA.-TOCOPHEROL
  12. MECOBALAMIN [Concomitant]
     Active Substance: METHYLCOBALAMIN
  13. NICOTINAMIDE [Concomitant]
     Active Substance: NIACINAMIDE
  14. HOLY BASIL [Concomitant]
  15. ELCIAMIN [Concomitant]
     Indication: OESOPHAGEAL DISORDER
  16. HYALURONIC ACID WITH MSM [Concomitant]
  17. VITAMIN B ACTIVE [Concomitant]
  18. PROTONIX [Suspect]
     Active Substance: PANTOPRAZOLE SODIUM
     Indication: GASTROOESOPHAGEAL REFLUX DISEASE
     Dosage: GENERIC
     Route: 048
     Dates: start: 20141207
  19. PEPCID [Suspect]
     Active Substance: FAMOTIDINE
     Indication: GASTROOESOPHAGEAL REFLUX DISEASE
     Route: 065
  20. LINSEED OIL [Concomitant]
     Active Substance: LINSEED OIL
  21. PRILOSEC [Suspect]
     Active Substance: OMEPRAZOLE MAGNESIUM
     Indication: GASTROOESOPHAGEAL REFLUX DISEASE
     Route: 048
  22. DGL LICORICE [Concomitant]
  23. MAGNESIUM [Concomitant]
     Active Substance: MAGNESIUM
  24. FOLIC ACID. [Concomitant]
     Active Substance: FOLIC ACID
  25. RETINOL [Concomitant]
     Active Substance: RETINOL
  26. RIBOFLAVIN [Concomitant]
     Active Substance: RIBOFLAVIN
  27. SELENIUM [Concomitant]
     Active Substance: SELENIUM
  28. MARSHMALLOW ROOT [Concomitant]
  29. PROBIOTICS [Concomitant]
     Active Substance: PROBIOTICS NOS
  30. BETACAROTENE [Concomitant]
     Active Substance: .BETA.-CAROTENE

REACTIONS (6)
  - Anxiety [Recovering/Resolving]
  - Chest pain [Recovering/Resolving]
  - Heart rate increased [Recovered/Resolved]
  - Panic attack [Recovering/Resolving]
  - Palpitations [Recovering/Resolving]
  - Dizziness [Recovering/Resolving]

NARRATIVE: CASE EVENT DATE: 20141208
